FAERS Safety Report 8479427-7 (Version None)
Quarter: 2012Q2

REPORT INFORMATION
  Report Type: 
  Country: None (occurrence: None)
  Receive Date: 20120402
  Receipt Date: 20120222
  Transmission Date: 20120825
  Serious: Yes (Hospitalization)
  Sender: FDA-Public Use
  Company Number: GXBR2012US000701

PATIENT
  Age: 65 Year
  Sex: Female
  Weight: 93.4 kg

DRUGS (5)
  1. DOCETAXEL [Suspect]
     Indication: BREAST CANCER
     Dosage: 75 MG/M2, Q 21 DAYS (PATIENT RECEIVED ONE DOSE, 146MG TOTAL), INFUSION
     Dates: start: 20111227, end: 20111227
  2. LASIX [Concomitant]
  3. CYCLOPHOSPHAMIDE [Concomitant]
  4. ADRIAMYCIN PFS [Concomitant]
  5. POTASSIUM CHLORIDE [Concomitant]

REACTIONS (5)
  - MUCOSAL INFLAMMATION [None]
  - STOMATITIS [None]
  - NEUTROPENIA [None]
  - PALMAR-PLANTAR ERYTHRODYSAESTHESIA SYNDROME [None]
  - DERMATITIS [None]
